FAERS Safety Report 15470716 (Version 1)
Quarter: 2018Q4

REPORT INFORMATION
  Report Type: Spontaneous
  Country: GB (occurrence: GB)
  Receive Date: 20181005
  Receipt Date: 20181005
  Transmission Date: 20190205
  Serious: Yes (Other)
  Sender: FDA-Public Use
  Company Number: GB-OSMOTICA_PHARMACEUTICAL_US_LLC-POI0573201800231

PATIENT
  Age: 46 Year
  Sex: Female

DRUGS (1)
  1. DIVIGEL [Suspect]
     Active Substance: ESTRADIOL
     Indication: HORMONE REPLACEMENT THERAPY
     Dosage: 4 TO 5 PUMP ACTUATIONS
     Route: 062

REACTIONS (3)
  - Haemorrhage [Unknown]
  - Thrombocytopenia [Unknown]
  - Overdose [Unknown]

NARRATIVE: CASE EVENT DATE: 2018
